FAERS Safety Report 5973366-9 (Version None)
Quarter: 2008Q4

REPORT INFORMATION
  Report Type: 
  Country: None (occurrence: None)
  Receive Date: 20081201
  Receipt Date: 20080916
  Transmission Date: 20090506
  Serious: Yes (Hospitalization)
  Sender: FDA-Public Use
  Company Number: US-AMGEN-KDL304849

PATIENT
  Sex: Male

DRUGS (1)
  1. ENBREL [Suspect]
     Indication: RHEUMATOID ARTHRITIS
     Route: 058
     Dates: start: 20070212, end: 20080829

REACTIONS (10)
  - CONTUSION [None]
  - DECREASED APPETITE [None]
  - DERMATITIS ACNEIFORM [None]
  - FATIGUE [None]
  - HAEMORRHAGIC DIATHESIS [None]
  - MUSCLE SPASMS [None]
  - MUSCULAR WEAKNESS [None]
  - NEUTROPENIA [None]
  - PAIN IN EXTREMITY [None]
  - WEIGHT DECREASED [None]
